FAERS Safety Report 18330069 (Version 1)
Quarter: 2020Q3

REPORT INFORMATION
  Report Type: Spontaneous
  Country: US (occurrence: US)
  Receive Date: 20200930
  Receipt Date: 20200930
  Transmission Date: 20201103
  Serious: Yes (Hospitalization)
  Sender: FDA-Public Use
  Company Number: None

PATIENT
  Sex: Female

DRUGS (2)
  1. XELJANZ XR [Suspect]
     Active Substance: TOFACITINIB CITRATE
     Indication: PSORIASIS
     Route: 048
     Dates: start: 20200604
  2. ALBUTEROL. [Concomitant]
     Active Substance: ALBUTEROL
     Dates: start: 20191126

REACTIONS (9)
  - Cough [None]
  - Pyrexia [None]
  - Loss of personal independence in daily activities [None]
  - Rash [None]
  - Fungal infection [None]
  - Dyspnoea [None]
  - Discomfort [None]
  - Pain [None]
  - Condition aggravated [None]
